FAERS Safety Report 4533763-5 (Version None)
Quarter: 2004Q4

REPORT INFORMATION
  Report Type: 
  Country: None (occurrence: None)
  Receive Date: 20041206
  Receipt Date: 20040927
  Transmission Date: 20050328
  Serious: No
  Sender: FDA-Public Use
  Company Number: USA040979436

PATIENT
  Age: 84 Year
  Sex: Male

DRUGS (4)
  1. CYMBALTA [Suspect]
     Indication: DEPRESSION
     Dosage: 30 MG DAY
     Dates: start: 20040921, end: 20040926
  2. ASPIRIN [Concomitant]
  3. ESTER-C (CALCIUM ASCORBATE) [Concomitant]
  4. MULTI-VITAMIN [Concomitant]

REACTIONS (1)
  - TREMOR [None]
